FAERS Safety Report 6842012-4 (Version None)
Quarter: 2010Q3

REPORT INFORMATION
  Report Type: 
  Country: None (occurrence: None)
  Receive Date: 20100714
  Receipt Date: 20070717
  Transmission Date: 20110219
  Serious: No
  Sender: FDA-Public Use
  Company Number: US-PFIZER INC-2007060609

PATIENT
  Sex: Female

DRUGS (7)
  1. CHANTIX [Suspect]
     Indication: SMOKING CESSATION THERAPY
     Route: 048
     Dates: start: 20070705
  2. TRICOR [Concomitant]
  3. HYDROXYZINE [Concomitant]
  4. SIMVASTATIN [Concomitant]
  5. ISOSORBIDE [Concomitant]
  6. AGGRENOX [Concomitant]
  7. LISINOPRIL [Concomitant]

REACTIONS (3)
  - DRUG HYPERSENSITIVITY [None]
  - NAUSEA [None]
  - VOMITING [None]
